FAERS Safety Report 7240618-4 (Version None)
Quarter: 2011Q1

REPORT INFORMATION
  Report Type: 
  Country: None (occurrence: None)
  Receive Date: 20110120
  Receipt Date: 20110120
  Transmission Date: 20110831
  Serious: Yes (Other)
  Sender: FDA-Public Use
  Company Number: None

PATIENT
  Sex: Male
  Weight: 72.5755 kg

DRUGS (4)
  1. LISINOPRIL [Concomitant]
  2. KEPPRA [Concomitant]
  3. NORVASC [Suspect]
     Indication: BLOOD PRESSURE INCREASED
     Dosage: 20 MG IN AM ORAL
     Route: 048
     Dates: start: 20100707
  4. TRILEPTAL [Suspect]
     Indication: EPILEPSY
     Dosage: 300 MG IN AM, ORAL
     Route: 048
     Dates: start: 20100707

REACTIONS (8)
  - SOMNOLENCE [None]
  - HEADACHE [None]
  - CHEST PAIN [None]
  - BLOOD PRESSURE INCREASED [None]
  - DEPRESSION [None]
  - PRURITUS [None]
  - URTICARIA [None]
  - MEMORY IMPAIRMENT [None]
